FAERS Safety Report 24941107 (Version 3)
Quarter: 2025Q1

REPORT INFORMATION
  Report Type: Report from Study
  Country: US (occurrence: US)
  Receive Date: 20250207
  Receipt Date: 20250324
  Transmission Date: 20250409
  Serious: Yes (Other)
  Sender: UCB
  Company Number: US-UCBSA-2025006547

PATIENT
  Sex: Female
  Weight: 24 kg

DRUGS (47)
  1. FINTEPLA [Suspect]
     Active Substance: FENFLURAMINE
     Indication: Lennox-Gastaut syndrome
     Dates: start: 20230806
  2. FINTEPLA [Suspect]
     Active Substance: FENFLURAMINE
     Indication: Seizure
     Dosage: 3 MILLILITER, 2X/DAY (BID)BY GTUBE
     Dates: start: 20240930
  3. FINTEPLA [Suspect]
     Active Substance: FENFLURAMINE
  4. ONFI [Concomitant]
     Active Substance: CLOBAZAM
     Indication: Seizure
     Dosage: 3 MILLILITER, 2X/DAY (BID)
     Dates: start: 201808
  5. ONFI [Concomitant]
     Active Substance: CLOBAZAM
  6. CLONAZEPAM [Concomitant]
     Active Substance: CLONAZEPAM
     Indication: Malaise
     Dosage: 0.5 MILLIGRAM, 2X/DAY (BID)
     Dates: start: 201711, end: 201808
  7. CLONAZEPAM [Concomitant]
     Active Substance: CLONAZEPAM
     Indication: Seizure
     Dosage: 1 MILLIGRAM, 2X/DAY (BID)
     Dates: start: 202104
  8. CLONAZEPAM [Concomitant]
     Active Substance: CLONAZEPAM
  9. CLONAZEPAM [Concomitant]
     Active Substance: CLONAZEPAM
  10. EPIDIOLEX [Concomitant]
     Active Substance: CANNABIDIOL
     Indication: Seizure
     Dates: start: 201905
  11. EPIDIOLEX [Concomitant]
     Active Substance: CANNABIDIOL
  12. FYCOMPA [Concomitant]
     Active Substance: PERAMPANEL
     Indication: Seizure
     Dosage: 16 MILLILITER, ONCE DAILY (QD)
     Dates: start: 202011
  13. NAYZILAM [Concomitant]
     Active Substance: MIDAZOLAM
     Indication: Seizure cluster
  14. CLONIDINE [Concomitant]
     Active Substance: CLONIDINE
     Indication: Product used for unknown indication
  15. ARIANE [Concomitant]
     Indication: Product used for unknown indication
  16. MELATONIN [Concomitant]
     Active Substance: MELATONIN
     Indication: Sleep apnoea syndrome
  17. MELATONIN [Concomitant]
     Active Substance: MELATONIN
  18. GABAPENTIN [Concomitant]
     Active Substance: GABAPENTIN
     Indication: Sleep apnoea syndrome
  19. GABAPENTIN [Concomitant]
     Active Substance: GABAPENTIN
     Dosage: 2 MILLILITER, 2X/DAY (BID), G TUBE
  20. TIZANIDINE [Concomitant]
     Active Substance: TIZANIDINE
     Indication: Sleep apnoea syndrome
     Dosage: 4 MILLIGRAM, ONCE DAILY (QD)
  21. TIZANIDINE [Concomitant]
     Active Substance: TIZANIDINE
  22. TIZANIDINE [Concomitant]
     Active Substance: TIZANIDINE
     Route: 048
  23. TETRABENAZINE [Concomitant]
     Active Substance: TETRABENAZINE
     Indication: Sleep apnoea syndrome
     Dosage: 12.5 MILLIGRAM, 3X/DAY (TID)
     Dates: start: 202208
  24. ZONEGRAN [Concomitant]
     Active Substance: ZONISAMIDE
     Indication: Product used for unknown indication
  25. BACLOFEN [Concomitant]
     Active Substance: BACLOFEN
     Indication: Product used for unknown indication
     Dosage: UNK, 2X/DAY (BID)
  26. BACLOFEN [Concomitant]
     Active Substance: BACLOFEN
  27. ACETAMINOPHEN [Concomitant]
     Active Substance: ACETAMINOPHEN
     Indication: Product used for unknown indication
     Route: 048
  28. ALBUTEROL SULFATE [Concomitant]
     Active Substance: ALBUTEROL SULFATE
     Indication: Wheezing
  29. BUDESONIDE [Concomitant]
     Active Substance: BUDESONIDE
     Indication: Product used for unknown indication
     Dosage: 2 MILLILITER, 2X/DAY (BID) BY NEBULIZATION
  30. FERROUS SULFATE [Concomitant]
     Active Substance: FERROUS SULFATE
     Indication: Product used for unknown indication
     Dosage: 4 MILLILITER, ONCE DAILY (QD)
     Route: 048
  31. FERROUS SULFATE [Concomitant]
     Active Substance: FERROUS SULFATE
     Dosage: 5 MILLILITER, ONCE DAILY (QD)
     Route: 048
  32. FLUTICASONE PROPIONATE [Concomitant]
     Active Substance: FLUTICASONE PROPIONATE
     Indication: Product used for unknown indication
  33. GLYCERIN [Concomitant]
     Active Substance: GLYCERIN
     Indication: Product used for unknown indication
     Dosage: UNK, ONCE DAILY (QD)
     Route: 054
  34. IBUPROFEN [Concomitant]
     Active Substance: IBUPROFEN
     Indication: Product used for unknown indication
     Route: 048
  35. IPRATROPIUM [Concomitant]
     Active Substance: IPRATROPIUM
     Indication: Product used for unknown indication
     Dosage: 2.5 MILLILITER, ONCE DAILY (QD),NEBULLZATLON
  36. LEVOTHYROXINE [Concomitant]
     Active Substance: LEVOTHYROXINE
     Indication: Product used for unknown indication
     Route: 048
  37. MAGNESIUM HYDROXIDE [Concomitant]
     Active Substance: MAGNESIUM HYDROXIDE
     Indication: Product used for unknown indication
     Dosage: 7 MILLILITER, 2X/DAY (BID)
     Route: 048
  38. NEXIUM [Concomitant]
     Active Substance: ESOMEPRAZOLE MAGNESIUM
     Indication: Product used for unknown indication
     Dosage: 15 MILLIGRAM, ONCE DAILY (QD)
  39. NITROFURANTOIN [Concomitant]
     Active Substance: NITROFURANTOIN
     Indication: Product used for unknown indication
     Dosage: UNK, ONCE DAILY (QD)
     Route: 048
  40. NORDITROPIN [Concomitant]
     Active Substance: SOMATROPIN
     Indication: Product used for unknown indication
  41. NYSTATIN [Concomitant]
     Active Substance: NYSTATIN
     Dosage: 1 TABLET BY G TUBE
  42. ONDANSETRON [Concomitant]
     Active Substance: ONDANSETRON
     Indication: Product used for unknown indication
     Route: 048
  43. PERAMPANEL [Concomitant]
     Active Substance: PERAMPANEL
     Indication: Product used for unknown indication
  44. SCOPOLAMINE [Concomitant]
     Active Substance: SCOPOLAMINE
     Indication: Product used for unknown indication
  45. SODIUM CHLORIDE [Concomitant]
     Active Substance: SODIUM CHLORIDE
     Indication: Product used for unknown indication
  46. TRAZODONE [Concomitant]
     Active Substance: TRAZODONE HYDROCHLORIDE
     Indication: Product used for unknown indication
     Dosage: 25 MILLIGRAM, ONCE DAILY (QD)
  47. TRIAMCINOLONE ACETONIDE [Concomitant]
     Active Substance: TRIAMCINOLONE ACETONIDE
     Indication: Product used for unknown indication

REACTIONS (7)
  - Seizure [Unknown]
  - Generalised tonic-clonic seizure [Unknown]
  - Cortical visual impairment [Unknown]
  - Hypotonia [Unknown]
  - Urinary tract infection [Unknown]
  - Somnolence [Unknown]
  - Agitation [Unknown]

NARRATIVE: CASE EVENT DATE: 20230101
